FAERS Safety Report 14733244 (Version 1)
Quarter: 2018Q2

REPORT INFORMATION
  Report Type: Spontaneous
  Country: US (occurrence: US)
  Receive Date: 20180409
  Receipt Date: 20180409
  Transmission Date: 20180711
  Serious: Yes (Hospitalization, Other)
  Sender: FDA-Public Use
  Company Number: US-AUROBINDO-AUR-APL-2018-018249

PATIENT
  Age: 2 Month

DRUGS (1)
  1. TRANEXAMIC ACID. [Suspect]
     Active Substance: TRANEXAMIC ACID
     Indication: PROCOAGULANT THERAPY
     Dosage: 50 MILLIGRAM/KILOGRAM, DOSE OF TRANEXAMIC ACID WAS MAINATINED AT 5 MG/KG/H
     Route: 065

REACTIONS (3)
  - Seizure [Unknown]
  - Deep vein thrombosis postoperative [Unknown]
  - Postoperative respiratory failure [Unknown]
